FAERS Safety Report 4852066-2 (Version None)
Quarter: 2005Q4

REPORT INFORMATION
  Report Type: 
  Country: None (occurrence: None)
  Receive Date: 20051212
  Receipt Date: 20051212
  Transmission Date: 20060501
  Serious: Yes (Life-Threatening)
  Sender: FDA-Public Use
  Company Number: None

PATIENT
  Age: 43 Year
  Sex: Male
  Weight: 78.0187 kg

DRUGS (9)
  1. KALETRA [Suspect]
     Indication: HIV INFECTION
     Dosage: 3 TABS Q12 HOURS PO
     Route: 048
     Dates: start: 20050725
  2. DIDANOSINE [Suspect]
     Indication: HIV INFECTION
     Dosage: 250 MG QD PO
     Route: 048
     Dates: start: 20050725
  3. TENOFOVIR [Suspect]
     Indication: HIV INFECTION
     Dosage: 300 MD QD PO
     Route: 048
     Dates: start: 20050725
  4. DAPSONE [Concomitant]
  5. AZITHROMYCIN [Concomitant]
  6. NEUTONTIN [Concomitant]
  7. FLUCONAZOLE [Concomitant]
  8. AMPHOTERICIN B [Concomitant]
  9. ABELCET [Concomitant]

REACTIONS (1)
  - HAEMORRHAGE INTRACRANIAL [None]
